FAERS Safety Report 13584810 (Version 4)
Quarter: 2018Q1

REPORT INFORMATION
  Report Type: Spontaneous
  Country: US (occurrence: US)
  Receive Date: 20170526
  Receipt Date: 20180117
  Transmission Date: 20180508
  Serious: Yes (Other)
  Sender: FDA-Public Use
  Company Number: US-BAYER-2017-096159

PATIENT
  Age: 17 Year
  Sex: Female
  Weight: 81.63 kg

DRUGS (1)
  1. SKYLA [Suspect]
     Active Substance: LEVONORGESTREL
     Indication: CONTRACEPTION
     Dosage: 14 MCG/24HR, CONT
     Route: 015
     Dates: start: 20161229, end: 20171010

REACTIONS (3)
  - Device dislocation [Not Recovered/Not Resolved]
  - Pregnancy with contraceptive device [Not Recovered/Not Resolved]
  - Drug ineffective [None]

NARRATIVE: CASE EVENT DATE: 201701
